FAERS Safety Report 15989371 (Version 4)
Quarter: 2019Q1

REPORT INFORMATION
  Report Type: Spontaneous
  Country: US (occurrence: US)
  Receive Date: 20190221
  Receipt Date: 20190313
  Transmission Date: 20190418
  Serious: Yes (Other)
  Sender: FDA-Public Use
  Company Number: US-PFIZER INC-2019068453

PATIENT
  Age: 69 Year
  Sex: Female

DRUGS (1)
  1. CORTISPORIN [Suspect]
     Active Substance: BACITRACIN ZINC\HYDROCORTISONE\NEOMYCIN SULFATE\POLYMYXIN B SULFATE
     Indication: RASH
     Dosage: 2 TO 3 TIMES A DAY
     Dates: start: 201803

REACTIONS (7)
  - Ear pruritus [Unknown]
  - Otorrhoea [Unknown]
  - Skin laceration [Unknown]
  - Sneezing [Unknown]
  - Pain of skin [Unknown]
  - Mental disorder [Unknown]
  - Incorrect route of product administration [Unknown]

NARRATIVE: CASE EVENT DATE: 201811
